FAERS Safety Report 9796459 (Version 1)
Quarter: 2014Q1

REPORT INFORMATION
  Report Type: Spontaneous
  Country: DE (occurrence: DE)
  Receive Date: 20140103
  Receipt Date: 20140103
  Transmission Date: 20141002
  Serious: Yes (Death)
  Sender: FDA-Public Use
  Company Number: DE-MYLANLABS-2013S1028754

PATIENT
  Age: 52 Year
  Sex: Male
  Weight: 140 kg

DRUGS (8)
  1. METHOTREXATE [Suspect]
     Indication: POLYARTHRITIS
     Route: 058
     Dates: start: 2008
  2. PREDNISOLON [Concomitant]
     Indication: HYPERSENSITIVITY VASCULITIS
     Dosage: 20
     Route: 048
     Dates: start: 2007
  3. INSULIN [Concomitant]
     Indication: TYPE 1 DIABETES MELLITUS
     Route: 058
     Dates: start: 2008
  4. FOLSAEURE [Concomitant]
     Indication: POLYARTHRITIS
     Dosage: DAILY DOSE: 5 MG MILLGRAM(S) EVERY WEEKS
     Route: 048
     Dates: start: 2008
  5. ASS [Concomitant]
     Indication: DIABETIC VASCULAR DISORDER
     Dosage: 100
     Route: 048
  6. RAMIPRIL [Concomitant]
     Indication: HYPERTENSION
     Dosage: 2.5
     Route: 048
  7. SIMVASTATIN [Concomitant]
     Indication: OBESITY
     Dosage: 20
     Route: 048
  8. FUROSEMID [Concomitant]
     Indication: CARDIAC FAILURE
     Dosage: 40
     Route: 048

REACTIONS (6)
  - Hepatic failure [Fatal]
  - Leukopenia [Fatal]
  - Multi-organ failure [Fatal]
  - Sepsis [Fatal]
  - Thrombocytopenia [Fatal]
  - Systemic inflammatory response syndrome [Fatal]
